FAERS Safety Report 6637864-7 (Version None)
Quarter: 2010Q1

REPORT INFORMATION
  Report Type: 
  Country: None (occurrence: None)
  Receive Date: 20100317
  Receipt Date: 20100308
  Transmission Date: 20100710
  Serious: Yes (Other)
  Sender: FDA-Public Use
  Company Number: CA-ASTRAZENECA-2010SE10060

PATIENT

DRUGS (3)
  1. LIDOCAINE [Suspect]
     Indication: URTICARIA
     Route: 061
  2. ROPIVACAINE WITH EPINEPHRINE [Suspect]
     Indication: NERVE BLOCK
     Route: 053
  3. TETRACAINE POLYGYL STERILE OPHTHALMIC SOLUTION [Suspect]
     Indication: NERVE BLOCK
     Route: 053

REACTIONS (2)
  - GRAND MAL CONVULSION [None]
  - TACHYCARDIA [None]
